FAERS Safety Report 9991751 (Version 2)
Quarter: 2014Q1

REPORT INFORMATION
  Report Type: Spontaneous
  Country: FR (occurrence: FR)
  Receive Date: 20140310
  Receipt Date: 20140310
  Transmission Date: 20141002
  Serious: Yes (Hospitalization, Other)
  Sender: FDA-Public Use
  Company Number: FR-ABBVIE-13P-056-1064803-00

PATIENT
  Age: 47 Year
  Sex: Female

DRUGS (3)
  1. ENANTONE [Suspect]
     Indication: BREAST CANCER
     Route: 030
     Dates: start: 2006, end: 20121010
  2. AFINITOR [Suspect]
     Indication: BREAST CANCER
     Route: 048
     Dates: start: 201209, end: 20130121
  3. EXEMESTANE [Suspect]
     Indication: BREAST CANCER
     Route: 048
     Dates: start: 201209

REACTIONS (1)
  - Eosinophilic pneumonia [Recovering/Resolving]
